FAERS Safety Report 4722802-4 (Version None)
Quarter: 2005Q3

REPORT INFORMATION
  Report Type: 
  Country: None (occurrence: None)
  Receive Date: 20050722
  Receipt Date: 20050718
  Transmission Date: 20060218
  Serious: Yes (Hospitalization)
  Sender: FDA-Public Use
  Company Number: PHRM2005FR02108

PATIENT
  Age: 83 Year
  Sex: Male

DRUGS (7)
  1. TEGRETOL [Suspect]
     Indication: EPILEPSY
     Dosage: 1200 MG/DAY
     Route: 048
     Dates: end: 20050510
  2. TEGRETOL [Suspect]
     Dosage: 1600 MG/DAY
     Route: 048
     Dates: start: 20050511
  3. MORPHINE [Concomitant]
     Indication: INTERVERTEBRAL DISC COMPRESSION
     Route: 042
     Dates: start: 20050511, end: 20050512
  4. PERFALGAN [Concomitant]
     Indication: INTERVERTEBRAL DISC COMPRESSION
     Dosage: 1 DF, TID
     Route: 042
     Dates: start: 20050511, end: 20050512
  5. MS CONTIN [Concomitant]
     Indication: INTERVERTEBRAL DISC COMPRESSION
     Dosage: 10 MG, QD
     Route: 048
     Dates: start: 20050513, end: 20050513
  6. TOPALGIC [Concomitant]
     Indication: INTERVERTEBRAL DISC COMPRESSION
     Dosage: 50 MG, QD
     Route: 048
     Dates: start: 20050514, end: 20050514
  7. TOPALGIC [Concomitant]
     Dosage: 100 MG, QD
     Route: 048
     Dates: start: 20050515, end: 20050515

REACTIONS (12)
  - AGITATION [None]
  - AMMONIA INCREASED [None]
  - ANTICONVULSANT DRUG LEVEL ABOVE THERAPEUTIC [None]
  - BUNDLE BRANCH BLOCK LEFT [None]
  - BUNDLE BRANCH BLOCK RIGHT [None]
  - CONFUSIONAL STATE [None]
  - ELECTROENCEPHALOGRAM ABNORMAL [None]
  - INTERVERTEBRAL DISC COMPRESSION [None]
  - METABOLIC ENCEPHALOPATHY [None]
  - MYOGLOBIN BLOOD INCREASED [None]
  - OVERDOSE [None]
  - SOMNOLENCE [None]
